FAERS Safety Report 7497734-1 (Version None)
Quarter: 2011Q2

REPORT INFORMATION
  Report Type: 
  Country: None (occurrence: None)
  Receive Date: 20110523
  Receipt Date: 20110510
  Transmission Date: 20111010
  Serious: Yes (Other)
  Sender: FDA-Public Use
  Company Number: GB-BAUSCH-2011BL003158

PATIENT
  Age: 56 Year
  Sex: Male
  Weight: 89 kg

DRUGS (8)
  1. DEXAMETHASONE [Suspect]
     Route: 042
     Dates: start: 20100923, end: 20100923
  2. LITHIUM [Concomitant]
     Indication: BIPOLAR DISORDER
  3. HALOPERIDOL [Concomitant]
  4. DEXAMETHASONE [Suspect]
     Route: 042
     Dates: start: 20101026, end: 20101026
  5. TRABECTEDIN [Suspect]
     Route: 042
     Dates: start: 20101026, end: 20101026
  6. TRABECTEDIN [Suspect]
     Indication: LEIOMYOSARCOMA METASTATIC
     Route: 042
     Dates: start: 20100902, end: 20100902
  7. DEXAMETHASONE [Suspect]
     Indication: PREMEDICATION
     Route: 042
     Dates: start: 20100902, end: 20100902
  8. TRABECTEDIN [Suspect]
     Route: 042
     Dates: start: 20100923, end: 20100923

REACTIONS (1)
  - CONFUSIONAL STATE [None]
